FAERS Safety Report 20410815 (Version 1)
Quarter: 2022Q1

REPORT INFORMATION
  Report Type: Spontaneous
  Country: PK (occurrence: None)
  Receive Date: 20220201
  Receipt Date: 20220201
  Transmission Date: 20220424
  Serious: Yes (Death)
  Sender: FDA-Public Use
  Company Number: PK-ROCHE-3015264

PATIENT
  Age: 75 Year
  Sex: Male

DRUGS (1)
  1. RITUXIMAB [Suspect]
     Active Substance: RITUXIMAB
     Indication: Diffuse large B-cell lymphoma
     Route: 041
     Dates: start: 20211119, end: 20211119

REACTIONS (2)
  - Pneumonia [Fatal]
  - Death [Fatal]

NARRATIVE: CASE EVENT DATE: 20211223
